FAERS Safety Report 18347961 (Version 1)
Quarter: 2020Q4

REPORT INFORMATION
  Report Type: Spontaneous
  Country: PT (occurrence: PT)
  Receive Date: 20201006
  Receipt Date: 20201006
  Transmission Date: 20210114
  Serious: Yes (Other)
  Sender: FDA-Public Use
  Company Number: PT-AUROBINDO-AUR-APL-2019-053220

PATIENT
  Age: 60 Year
  Sex: Female

DRUGS (10)
  1. PREGABALIN. [Suspect]
     Active Substance: PREGABALIN
     Dosage: 50 MILLIGRAM, ONCE A DAY,50 MILLIGRAM DAILY;
     Route: 048
  2. ILOPROST. [Suspect]
     Active Substance: ILOPROST
     Indication: THROMBOANGIITIS OBLITERANS
     Dosage: PERFUSION
     Route: 065
  3. BUPRENORPHINE. [Suspect]
     Active Substance: BUPRENORPHINE
     Indication: THROMBOANGIITIS OBLITERANS
     Dosage: 35 MICROGRAM/HOUR, ONCE A DAY
     Route: 062
  4. BUPRENORPHINE. [Suspect]
     Active Substance: BUPRENORPHINE
     Dosage: 17.5 MICROGRAM/HOUR, ONCE A DAY
     Route: 062
  5. PREGABALIN. [Suspect]
     Active Substance: PREGABALIN
     Indication: THROMBOANGIITIS OBLITERANS
     Dosage: 100 MILLIGRAM DAILY; THE DOSE OF PREGABALIN WAS TITRATED TO 50 MG
     Route: 048
  6. TRAMADOL. [Suspect]
     Active Substance: TRAMADOL
     Indication: THROMBOANGIITIS OBLITERANS
     Dosage: 75 MILLIGRAM, ONCE A DAY
     Route: 065
  7. ASPIRIN. [Suspect]
     Active Substance: ASPIRIN
     Indication: THROMBOANGIITIS OBLITERANS
     Dosage: 150 MILLIGRAM
     Route: 065
  8. PREGABALIN. [Suspect]
     Active Substance: PREGABALIN
     Dosage: 25 MILLIGRAM, TWO TIMES A DAY
     Route: 048
  9. PARACETAMOL [Suspect]
     Active Substance: ACETAMINOPHEN
     Indication: THROMBOANGIITIS OBLITERANS
     Dosage: 375 MILLIGRAM
     Route: 065
  10. TRAMADOL. [Suspect]
     Active Substance: TRAMADOL
     Dosage: 37.5 MILLIGRAM, TWO TIMES A DAY
     Route: 065

REACTIONS (1)
  - Drug ineffective [Unknown]
